FAERS Safety Report 16140392 (Version 3)
Quarter: 2019Q2

REPORT INFORMATION
  Report Type: Spontaneous
  Country: ES (occurrence: ES)
  Receive Date: 20190401
  Receipt Date: 20190412
  Transmission Date: 20190711
  Serious: Yes (Hospitalization)
  Sender: FDA-Public Use
  Company Number: ES-009507513-1903ESP011786

PATIENT
  Age: 70 Year
  Sex: Male
  Weight: 60 kg

DRUGS (2)
  1. FENTANYL. [Concomitant]
     Active Substance: FENTANYL
     Indication: PAIN
     Dosage: DOSE: 100 (UNSPECIFIED UNIT) PER THREE DAYS
     Route: 062
     Dates: start: 20190310
  2. KEYTRUDA [Suspect]
     Active Substance: PEMBROLIZUMAB
     Indication: LUNG NEOPLASM MALIGNANT
     Dosage: DOSE 200 (UNSPECIFIED UNIT) FREQUENCY AS 21 (UNSPECIFIED)
     Route: 042
     Dates: start: 20190225, end: 20190225

REACTIONS (2)
  - Transaminases increased [Recovered/Resolved with Sequelae]
  - Hyperbilirubinaemia [Recovered/Resolved]

NARRATIVE: CASE EVENT DATE: 20190315
